FAERS Safety Report 17091188 (Version 1)
Quarter: 2019Q4

REPORT INFORMATION
  Report Type: Spontaneous
  Country: TH (occurrence: TH)
  Receive Date: 20191129
  Receipt Date: 20191129
  Transmission Date: 20200122
  Serious: Yes (Life-Threatening, Hospitalization, Other)
  Sender: FDA-Public Use
  Company Number: TH-ALVOGEN-2019-ALVOGEN-101996

PATIENT
  Sex: Female

DRUGS (3)
  1. CIBENZOLINE [Suspect]
     Active Substance: CIFENLINE
     Indication: ARRHYTHMIA
     Route: 065
  2. ATENOLOL. [Suspect]
     Active Substance: ATENOLOL
     Indication: ARRHYTHMIA
     Route: 065
  3. AMIODARONE [Suspect]
     Active Substance: AMIODARONE
     Indication: ARRHYTHMIA
     Route: 065

REACTIONS (1)
  - Atrioventricular block complete [Unknown]
